FAERS Safety Report 13828429 (Version 8)
Quarter: 2020Q1

REPORT INFORMATION
  Report Type: Spontaneous
  Country: US (occurrence: US)
  Receive Date: 20170803
  Receipt Date: 20200205
  Transmission Date: 20200409
  Serious: Yes (Hospitalization, Other)
  Sender: FDA-Public Use
  Company Number: US-PFIZER INC-2017334257

PATIENT
  Age: 57 Year
  Sex: Female
  Weight: 59 kg

DRUGS (8)
  1. LYRICA [Suspect]
     Active Substance: PREGABALIN
     Dosage: 200 MG, 3X/DAY
     Route: 048
  2. FOLIC ACID. [Concomitant]
     Active Substance: FOLIC ACID
     Indication: COAGULOPATHY
     Dosage: 1 MG, 1X/DAY
     Route: 048
  3. VITAMIN B12 [Concomitant]
     Active Substance: CYANOCOBALAMIN
     Indication: COAGULOPATHY
     Dosage: 1000 UG, 1X/DAY
     Route: 048
  4. WELLBUTRIN [Concomitant]
     Active Substance: BUPROPION HYDROCHLORIDE
     Indication: DEPRESSION
     Dosage: 300 MG, 1X/DAY
     Route: 048
  5. LYRICA [Suspect]
     Active Substance: PREGABALIN
     Indication: PARALYSIS
     Dosage: 200 MG, 3X/DAY
     Route: 048
     Dates: end: 20170729
  6. LEVOTHYROXINE. [Concomitant]
     Active Substance: LEVOTHYROXINE
     Indication: THYROID DISORDER
     Dosage: 125 UG, 1X/DAY (ONCE IN THE MORNING)
     Route: 048
  7. AMBIEN [Concomitant]
     Active Substance: ZOLPIDEM TARTRATE
     Indication: SLEEP DISORDER
     Dosage: 10 MG, DAILY (ONE AT NIGHT)
     Route: 048
  8. LYRICA [Suspect]
     Active Substance: PREGABALIN
     Indication: PHANTOM LIMB SYNDROME
     Dosage: 2 DF, UNK

REACTIONS (7)
  - Paraesthesia [Unknown]
  - Intentional product use issue [Unknown]
  - Neuralgia [Not Recovered/Not Resolved]
  - Product use in unapproved indication [Unknown]
  - Thermal burn [Unknown]
  - Lower limb fracture [Unknown]
  - Off label use [Unknown]

NARRATIVE: CASE EVENT DATE: 20170730
